FAERS Safety Report 9747077 (Version 1)
Quarter: 2013Q4

REPORT INFORMATION
  Report Type: Spontaneous
  Country: GB (occurrence: GB)
  Receive Date: 20131211
  Receipt Date: 20131211
  Transmission Date: 20140711
  Serious: Yes (Other)
  Sender: FDA-Public Use
  Company Number: PHHY2013GB142785

PATIENT
  Age: 61 Year
  Sex: Female
  Weight: 44.45 kg

DRUGS (7)
  1. AMOXICILLIN [Suspect]
     Indication: LOWER RESPIRATORY TRACT INFECTION
     Dosage: 1 DF, TID ONE, THREE TIMES A DAY
     Route: 048
     Dates: start: 20131004, end: 20131005
  2. AMLODIPINE [Concomitant]
  3. PERINDOPRIL ERBUMINE [Concomitant]
  4. PHYLLOCONTIN CONTINUS [Concomitant]
  5. SALBUTAMOL [Concomitant]
  6. SERETIDE [Concomitant]
  7. TIOTROPIUM BROMIDE [Concomitant]

REACTIONS (9)
  - Faecal incontinence [Recovered/Resolved]
  - Dyspnoea [Recovered/Resolved]
  - Swelling face [Recovered/Resolved]
  - Lip swelling [Recovered/Resolved]
  - Loss of consciousness [Recovered/Resolved]
  - Malaise [Unknown]
  - Burning sensation [Unknown]
  - Urticaria [Recovered/Resolved]
  - Pruritus [Unknown]
